FAERS Safety Report 7354539-X (Version None)
Quarter: 2011Q1

REPORT INFORMATION
  Report Type: 
  Country: None (occurrence: None)
  Receive Date: 20110316
  Receipt Date: 20110121
  Transmission Date: 20110831
  Serious: Yes (Hospitalization)
  Sender: FDA-Public Use
  Company Number: US-BAYER-2011-023007

PATIENT
  Sex: Female
  Weight: 59.864 kg

DRUGS (1)
  1. YASMIN [Suspect]
     Indication: MENOMETRORRHAGIA
     Dosage: UNK
     Dates: start: 20030201, end: 20050501

REACTIONS (1)
  - PULMONARY EMBOLISM [None]
